FAERS Safety Report 4501890-4 (Version None)
Quarter: 2004Q4

REPORT INFORMATION
  Report Type: 
  Country: None (occurrence: None)
  Receive Date: 20041115
  Receipt Date: 20041115
  Transmission Date: 20050328
  Serious: Yes (Life-Threatening, Hospitalization)
  Sender: FDA-Public Use
  Company Number: None

PATIENT
  Age: 85 Year
  Sex: Male
  Weight: 77.1 kg

DRUGS (10)
  1. WARFARIN SODIUM [Suspect]
  2. DIGOXIN [Suspect]
  3. GOSERELIN ACETATE [Concomitant]
  4. BUPROPRION (WELLBUTRIN SR) [Concomitant]
  5. BICALUTAMIDE CITALOPRAM [Concomitant]
  6. GABAPENTIN [Concomitant]
  7. MORPHINE SULFATE [Concomitant]
  8. VENLAFAXINE HCL [Concomitant]
  9. FENTANYL TRANSDERMAL PATCH [Concomitant]
  10. LIDOCAINE [Concomitant]

REACTIONS (2)
  - HAEMORRHAGE [None]
  - INTERNATIONAL NORMALISED RATIO INCREASED [None]
